FAERS Safety Report 8981783 (Version 2)
Quarter: 2013Q1

REPORT INFORMATION
  Report Type: Spontaneous
  Country: SG (occurrence: SG)
  Receive Date: 20121223
  Receipt Date: 20130117
  Transmission Date: 20140127
  Serious: Yes (Life-Threatening, Hospitalization, Other)
  Sender: FDA-Public Use
  Company Number: PHHY2012SG118077

PATIENT
  Age: 44 Year
  Sex: Female

DRUGS (2)
  1. ZOMETA [Suspect]
     Indication: METASTASES TO BONE
     Dosage: 4 MG, EVERY 4 WEEKS
     Route: 042
     Dates: start: 201208, end: 201212
  2. FEMARA [Suspect]
     Dosage: 2.5 MG, UNK
     Dates: start: 201208

REACTIONS (1)
  - Atypical femur fracture [Unknown]
